FAERS Safety Report 9692566 (Version 1)
Quarter: 2013Q4

REPORT INFORMATION
  Report Type: Spontaneous
  Country: GB (occurrence: GB)
  Receive Date: 20131118
  Receipt Date: 20131118
  Transmission Date: 20140711
  Serious: Yes (Hospitalization, Other)
  Sender: FDA-Public Use
  Company Number: GB-JNJFOC-20131104706

PATIENT
  Age: 38 Year
  Sex: Male

DRUGS (9)
  1. HALOPERIDOL [Suspect]
     Indication: PRODUCT USED FOR UNKNOWN INDICATION
     Route: 065
  2. ZYPREXA [Interacting]
     Indication: SCHIZOPHRENIA
     Route: 048
     Dates: start: 200108
  3. ZYPREXA [Interacting]
     Indication: SCHIZOPHRENIA
     Dosage: 10 MG TABLET X 3
     Route: 048
     Dates: start: 2004, end: 2008
  4. ZYPREXA [Interacting]
     Indication: SCHIZOPHRENIA
     Route: 048
     Dates: end: 20130815
  5. ZYPREXA [Interacting]
     Indication: SCHIZOPHRENIA
     Route: 048
     Dates: start: 20130911
  6. ZYPREXA [Interacting]
     Indication: PSYCHOTIC DISORDER
     Route: 048
     Dates: end: 20130815
  7. ZYPREXA [Interacting]
     Indication: PSYCHOTIC DISORDER
     Route: 048
     Dates: start: 20130911
  8. ZYPREXA [Interacting]
     Indication: PSYCHOTIC DISORDER
     Dosage: 10 MG TABLET X 3
     Route: 048
     Dates: start: 2004, end: 2008
  9. ZYPREXA [Interacting]
     Indication: PSYCHOTIC DISORDER
     Route: 048
     Dates: start: 200108

REACTIONS (4)
  - Schizophrenia [Not Recovered/Not Resolved]
  - Bundle branch block right [Unknown]
  - Drug interaction [Unknown]
  - Overdose [Unknown]
